FAERS Safety Report 6455384-X (Version None)
Quarter: 2009Q4

REPORT INFORMATION
  Report Type: 
  Country: None (occurrence: None)
  Receive Date: 20091125
  Receipt Date: 20090820
  Transmission Date: 20100525
  Serious: No
  Sender: FDA-Public Use
  Company Number: US-ABBOTT-09P-163-0592668-00

PATIENT
  Sex: Female
  Weight: 59.02 kg

DRUGS (4)
  1. SIMCOR [Suspect]
     Indication: BLOOD TRIGLYCERIDES INCREASED
     Dosage: 500/20MG 1 PILL ONCE A DAY
     Route: 048
     Dates: start: 20090101, end: 20090801
  2. SIMCOR [Suspect]
     Dosage: 500/20MG 2 PILLS ONCE A DAY
     Route: 048
     Dates: start: 20090801
  3. UNKNOWN MEDICATION NAME [Concomitant]
     Indication: HYPERTENSION
  4. PREVACID [Concomitant]
     Indication: DRUG USE FOR UNKNOWN INDICATION

REACTIONS (3)
  - BLOOD TRIGLYCERIDES INCREASED [None]
  - FLUSHING [None]
  - PRURITUS [None]
